FAERS Safety Report 19884043 (Version 1)
Quarter: 2021Q3

REPORT INFORMATION
  Report Type: Spontaneous
  Country: US (occurrence: US)
  Receive Date: 20210924
  Receipt Date: 20210924
  Transmission Date: 20211014
  Serious: No
  Sender: FDA-Public Use
  Company Number: None

PATIENT
  Sex: Female

DRUGS (3)
  1. MAYZENT [Suspect]
     Active Substance: SIPONIMOD
     Indication: MULTIPLE SCLEROSIS
     Route: 048
     Dates: start: 202102
  2. AMPYRA [Concomitant]
     Active Substance: DALFAMPRIDINE
  3. MAYZENT [Concomitant]
     Active Substance: SIPONIMOD

REACTIONS (2)
  - Therapy interrupted [None]
  - COVID-19 [None]
